FAERS Safety Report 18218617 (Version 1)
Quarter: 2020Q3

REPORT INFORMATION
  Report Type: Spontaneous
  Country: US (occurrence: US)
  Receive Date: 20200831
  Receipt Date: 20200831
  Transmission Date: 20201103
  Serious: No
  Sender: FDA-Public Use
  Company Number: None

PATIENT
  Age: 89 Year
  Sex: Male

DRUGS (1)
  1. ZYTIGA [Suspect]
     Active Substance: ABIRATERONE ACETATE
     Route: 048
     Dates: start: 201905

REACTIONS (4)
  - Blood urine present [None]
  - Groin pain [None]
  - Arthralgia [None]
  - Urinary tract infection [None]

NARRATIVE: CASE EVENT DATE: 20200814
